FAERS Safety Report 9271432 (Version 2)
Quarter: 2013Q2

REPORT INFORMATION
  Report Type: Spontaneous
  Country: US (occurrence: US)
  Receive Date: 20130506
  Receipt Date: 20130517
  Transmission Date: 20140414
  Serious: No
  Sender: FDA-Public Use
  Company Number: US-PFIZER INC-2013139433

PATIENT
  Age: 63 Year
  Sex: Female
  Weight: 109 kg

DRUGS (3)
  1. PHENYTOIN SODIUM [Suspect]
     Indication: EPILEPSY
     Dosage: ONE CAPSULE OF 100MG IN THE MORNING AND TWO CAPSULES EACH OF 100MG IN THE EVENING, 2X/DAY
     Route: 048
     Dates: start: 20130412
  2. PHENOBARBITAL [Concomitant]
     Indication: CONVULSION
     Dosage: 60MG IN MORNING AND 90MG IN EVENING , 2X/DAY
  3. METHOTREXATE [Concomitant]
     Indication: RHEUMATOID ARTHRITIS
     Dosage: 25 MG, WEEKLY

REACTIONS (1)
  - Drug effect incomplete [Unknown]
